FAERS Safety Report 5385214-9 (Version None)
Quarter: 2007Q3

REPORT INFORMATION
  Report Type: 
  Country: None (occurrence: None)
  Receive Date: 20070709
  Receipt Date: 20070622
  Transmission Date: 20080115
  Serious: Yes (Hospitalization)
  Sender: FDA-Public Use
  Company Number: AZAUK200700220

PATIENT
  Age: 68 Year
  Sex: Male
  Weight: 70 kg

DRUGS (4)
  1. VIDAZA [Suspect]
     Indication: MYELODYSPLASTIC SYNDROME
     Dosage: (75 MG/M2, SUBCUTANEOUS
     Route: 058
     Dates: start: 20070411, end: 20070417
  2. CIPROFLOXACIN [Concomitant]
  3. NYSTATIN [Concomitant]
  4. ACYCLOVIR [Concomitant]

REACTIONS (1)
  - ABSCESS INTESTINAL [None]
